FAERS Safety Report 10430822 (Version 6)
Quarter: 2015Q1

REPORT INFORMATION
  Report Type: Report from Study
  Country: US (occurrence: US)
  Receive Date: 20140904
  Receipt Date: 20150202
  Transmission Date: 20150720
  Serious: Yes (Hospitalization)
  Sender: FDA-Public Use
  Company Number: US-SA-2014SA115630

PATIENT
  Age: 44 Year
  Sex: Female

DRUGS (2)
  1. AUBAGIO [Suspect]
     Active Substance: TERIFLUNOMIDE
     Indication: MULTIPLE SCLEROSIS
     Route: 048
     Dates: start: 20140813, end: 20141225
  2. ALL OTHER THERAPEUTIC PRODUCTS [Concomitant]
     Active Substance: UNSPECIFIED INGREDIENT
     Indication: HYPOTHYROIDISM

REACTIONS (32)
  - Pyrexia [Unknown]
  - Peripheral swelling [Unknown]
  - Drug dose omission [Unknown]
  - Renal pain [Unknown]
  - Gastritis [Unknown]
  - Malaise [Unknown]
  - Alopecia [Unknown]
  - Abdominal pain [Unknown]
  - Hypoaesthesia [Unknown]
  - Walking aid user [Unknown]
  - Depression [Unknown]
  - Balance disorder [Unknown]
  - Feeling abnormal [Unknown]
  - Diarrhoea [Unknown]
  - Nausea [Unknown]
  - Bronchitis [Unknown]
  - Pain [Unknown]
  - Blood pressure increased [Unknown]
  - Fall [Unknown]
  - Multiple sclerosis relapse [Unknown]
  - Pharyngitis [Unknown]
  - Dizziness [Unknown]
  - Chest pain [Unknown]
  - Asthenia [Unknown]
  - Seizure [Unknown]
  - Gastrooesophageal reflux disease [Unknown]
  - Joint swelling [Unknown]
  - Muscular weakness [Unknown]
  - Limb discomfort [Unknown]
  - Head injury [Unknown]
  - Oropharyngeal pain [Unknown]
  - Vertebral lesion [Unknown]
